FAERS Safety Report 9383441 (Version 1)
Quarter: 2013Q3

REPORT INFORMATION
  Report Type: Spontaneous
  Country: FR (occurrence: FR)
  Receive Date: 20130704
  Receipt Date: 20130704
  Transmission Date: 20140515
  Serious: Yes (Other)
  Sender: FDA-Public Use
  Company Number: FR-AMGEN-FRASP2013045520

PATIENT
  Age: 74 Year
  Sex: Male

DRUGS (2)
  1. VECTIBIX [Suspect]
     Indication: COLON CANCER METASTATIC
     Dosage: 380 MG, CYCLE
     Route: 042
     Dates: start: 20120413
  2. CHEMOTHERAPEUTICS [Concomitant]
     Indication: COLON CANCER METASTATIC
     Dosage: UNK

REACTIONS (8)
  - Fungal paronychia [Not Recovered/Not Resolved]
  - Xerosis [Recovered/Resolved]
  - Folliculitis [Recovered/Resolved]
  - Acne [Not Recovered/Not Resolved]
  - Skin fissures [Recovered/Resolved]
  - Paronychia [Recovered/Resolved]
  - Nail disorder [Recovered/Resolved]
  - Pruritus [Recovered/Resolved]
